FAERS Safety Report 14160708 (Version 1)
Quarter: 2017Q4

REPORT INFORMATION
  Report Type: Spontaneous
  Country: GB (occurrence: GB)
  Receive Date: 20171106
  Receipt Date: 20171106
  Transmission Date: 20180321
  Serious: Yes (Other)
  Sender: FDA-Public Use
  Company Number: GB-CONCORDIA PHARMACEUTICALS INC.-GSH201510-015255

PATIENT
  Age: 56 Year
  Sex: Male

DRUGS (4)
  1. PREDNISOLONE. [Suspect]
     Active Substance: PREDNISOLONE
     Indication: IMMUNOSUPPRESSANT DRUG LEVEL
     Dosage: STRENGTH: 5 MG
  2. ACCORD HEALTHCARE MYCOPHENOLATE MOFETIL [Suspect]
     Active Substance: MYCOPHENOLATE MOFETIL
     Indication: IMMUNOSUPPRESSANT DRUG THERAPY
     Dosage: STRENGTH: 250 MG
  3. DEXIMUNE [Suspect]
     Active Substance: CYCLOSPORINE
  4. DEXIMUNE [Suspect]
     Active Substance: CYCLOSPORINE
     Indication: IMMUNOSUPPRESSANT DRUG THERAPY
     Dosage: STRENGTH: 25 MG AND 50 MG

REACTIONS (2)
  - Skin depigmentation [Not Recovered/Not Resolved]
  - Skin discolouration [Not Recovered/Not Resolved]
